FAERS Safety Report 5725721-X (Version None)
Quarter: 2008Q2

REPORT INFORMATION
  Report Type: 
  Country: None (occurrence: None)
  Receive Date: 20080429
  Receipt Date: 20080423
  Transmission Date: 20081010
  Serious: Yes (Death)
  Sender: FDA-Public Use
  Company Number: 2008SP007688

PATIENT
  Age: 64 Year
  Sex: Female

DRUGS (1)
  1. NOXAFIL [Suspect]
     Indication: LUNG DISORDER
     Dosage: 400 MG;BID;PO
     Route: 048

REACTIONS (1)
  - DEATH [None]
